FAERS Safety Report 9684932 (Version 2)
Quarter: 2014Q1

REPORT INFORMATION
  Report Type: Spontaneous
  Country: US (occurrence: US)
  Receive Date: 20131113
  Receipt Date: 20140114
  Transmission Date: 20141002
  Serious: Yes (Other)
  Sender: FDA-Public Use
  Company Number: US-BIOGENIDEC-2013BI107254

PATIENT
  Age: 26 Year
  Sex: Female

DRUGS (11)
  1. TYSABRI [Suspect]
     Indication: MULTIPLE SCLEROSIS
     Route: 042
     Dates: start: 20120405, end: 20121205
  2. TYSABRI [Suspect]
     Indication: MULTIPLE SCLEROSIS
     Route: 042
     Dates: start: 20130918
  3. MINOCYCLINE [Concomitant]
     Route: 048
  4. DIPHENHYDRAMINE [Concomitant]
     Route: 042
  5. ACETAMINOPHEN [Concomitant]
     Route: 048
  6. PRENATAL MULTIVITAMIN-FE-FA [Concomitant]
     Route: 048
  7. SERTRALINE [Concomitant]
     Route: 048
  8. CHOLECALCIFEROL [Concomitant]
     Route: 048
  9. NAPROXEN [Concomitant]
     Route: 048
  10. OMEPRAZOLE [Concomitant]
     Route: 048
  11. CALCIUM CARBONATE [Concomitant]
     Route: 048

REACTIONS (1)
  - Foetal death [Unknown]
